FAERS Safety Report 17898728 (Version 5)
Quarter: 2021Q4

REPORT INFORMATION
  Report Type: Report from Study
  Country: KR (occurrence: KR)
  Receive Date: 20200616
  Receipt Date: 20211103
  Transmission Date: 20220303
  Serious: Yes (Hospitalization)
  Sender: FDA-Public Use
  Company Number: KR-ABBVIE-20K-090-3440388-00

PATIENT
  Age: 54 Year
  Sex: Male
  Weight: 73 kg

DRUGS (29)
  1. GLECAPREVIR\PIBRENTASVIR [Suspect]
     Active Substance: GLECAPREVIR\PIBRENTASVIR
     Indication: Chronic hepatitis C
     Route: 048
     Dates: start: 20200220, end: 20200222
  2. GLECAPREVIR\PIBRENTASVIR [Suspect]
     Active Substance: GLECAPREVIR\PIBRENTASVIR
     Route: 048
     Dates: start: 20200318, end: 20200510
  3. NORVASC [Concomitant]
     Active Substance: AMLODIPINE BESYLATE
     Indication: Hypertension
  4. ACECLOFENAC [Concomitant]
     Active Substance: ACECLOFENAC
     Indication: Product used for unknown indication
  5. STILLEN [Concomitant]
     Indication: Gastritis prophylaxis
  6. ULTRACET [Concomitant]
     Active Substance: ACETAMINOPHEN\TRAMADOL HYDROCHLORIDE
     Indication: Product used for unknown indication
  7. LANSOPRAZOLE [Concomitant]
     Active Substance: LANSOPRAZOLE
     Indication: Gastritis prophylaxis
  8. MEPERIDINE HYDROCHLORIDE [Concomitant]
     Active Substance: MEPERIDINE HYDROCHLORIDE
     Indication: Product used for unknown indication
  9. VASCAM [Concomitant]
     Indication: Product used for unknown indication
  10. NORZYME [Concomitant]
     Indication: Gastritis prophylaxis
  11. MAGNESIUM OXIDE [Concomitant]
     Active Substance: MAGNESIUM OXIDE
     Indication: Constipation prophylaxis
  12. ALLELOCK [Concomitant]
     Active Substance: OLOPATADINE HYDROCHLORIDE
     Indication: Pruritus
  13. NICARDIPINE HYDROCHLORIDE [Concomitant]
     Active Substance: NICARDIPINE HYDROCHLORIDE
     Indication: Hypertension
  14. PAZERON [Concomitant]
     Indication: Product used for unknown indication
  15. MARINASOL [Concomitant]
     Indication: Product used for unknown indication
  16. NADOXOL [Concomitant]
     Indication: Product used for unknown indication
  17. RAMOSETRON HYDROCHLORIDE [Concomitant]
     Active Substance: RAMOSETRON HYDROCHLORIDE
     Indication: Product used for unknown indication
  18. VOLULYTE [Concomitant]
     Indication: Mineral supplementation
  19. RAMOSETRON HYDROCHLORIDE [Concomitant]
     Active Substance: RAMOSETRON HYDROCHLORIDE
     Indication: Postoperative care
  20. ERDOSTEINE [Concomitant]
     Active Substance: ERDOSTEINE
     Indication: Pneumonia
  21. ZOLPIDEM TARTRATE [Concomitant]
     Active Substance: ZOLPIDEM TARTRATE
     Indication: Anxiety disorder
  22. TRAZODONE HYDROCHLORIDE [Concomitant]
     Active Substance: TRAZODONE HYDROCHLORIDE
     Indication: Anxiety disorder
  23. ATIVAN [Concomitant]
     Active Substance: LORAZEPAM
     Indication: Anxiety disorder
  24. TWOLION [Concomitant]
     Indication: Pruritus
     Route: 048
     Dates: start: 20200603, end: 20200608
  25. TWOLION [Concomitant]
     Route: 048
     Dates: start: 20200610
  26. COBINOL [Concomitant]
     Indication: Premedication
     Route: 030
     Dates: start: 20200602, end: 20200602
  27. COBINOL [Concomitant]
     Route: 030
     Dates: start: 20200609, end: 20200609
  28. DONG-A GASTER [Concomitant]
     Indication: Gastritis prophylaxis
     Dosage: DAILY DOSE 3 VIALS
     Route: 042
     Dates: start: 20200602, end: 20200602
  29. DONG-A GASTER [Concomitant]
     Dosage: 20 MG VIAL?DAILY DOSE 3 VIALS
     Route: 042
     Dates: start: 20200609, end: 20200609

REACTIONS (2)
  - Intervertebral disc disorder [Recovered/Resolved]
  - Radiculopathy [Recovered/Resolved]

NARRATIVE: CASE EVENT DATE: 20200601
